FAERS Safety Report 16722135 (Version 1)
Quarter: 2019Q3

REPORT INFORMATION
  Report Type: Spontaneous
  Country: CA (occurrence: CA)
  Receive Date: 20190820
  Receipt Date: 20190820
  Transmission Date: 20191005
  Serious: Yes (Other)
  Sender: FDA-Public Use
  Company Number: CA-SHIRE-CA201926517

PATIENT

DRUGS (1)
  1. VYVANSE [Suspect]
     Active Substance: LISDEXAMFETAMINE DIMESYLATE
     Indication: ATTENTION DEFICIT/HYPERACTIVITY DISORDER
     Dosage: 10 MILLIGRAM, 1X/DAY:QD
     Route: 048

REACTIONS (10)
  - Nightmare [Recovering/Resolving]
  - Anxiety [Recovering/Resolving]
  - Fear [Recovering/Resolving]
  - Hallucination, tactile [Recovering/Resolving]
  - Post-traumatic stress disorder [Recovering/Resolving]
  - Pressure of speech [Recovering/Resolving]
  - Somnolence [Recovering/Resolving]
  - Screaming [Recovering/Resolving]
  - Psychomotor hyperactivity [Recovering/Resolving]
  - Hallucination, auditory [Recovering/Resolving]
